FAERS Safety Report 6588360-7 (Version None)
Quarter: 2010Q1

REPORT INFORMATION
  Report Type: 
  Country: None (occurrence: None)
  Receive Date: 20100218
  Receipt Date: 20100209
  Transmission Date: 20100710
  Serious: Yes (Hospitalization)
  Sender: FDA-Public Use
  Company Number: US-ROCHE-685168

PATIENT
  Sex: Male
  Weight: 52 kg

DRUGS (1)
  1. TOCILIZUMAB [Suspect]
     Indication: RHEUMATOID ARTHRITIS
     Dosage: LAST DOSE PRIOR TO SAE: 12 DECEMBER 2009.
     Route: 042
     Dates: start: 20091212

REACTIONS (1)
  - ABDOMINAL PAIN [None]
